FAERS Safety Report 5074887-6 (Version None)
Quarter: 2006Q3

REPORT INFORMATION
  Report Type: 
  Country: None (occurrence: None)
  Receive Date: 20060717
  Receipt Date: 20051104
  Transmission Date: 20061208
  Serious: No
  Sender: FDA-Public Use
  Company Number: 2005002174

PATIENT
  Sex: Female

DRUGS (3)
  1. TARCEVA [Suspect]
     Indication: GASTROINTESTINAL CARCINOMA
     Dosage: ORAL
     Route: 048
  2. GEMZAR [Concomitant]
  3. SYNTHROID [Concomitant]

REACTIONS (1)
  - HYPOTHYROIDISM [None]
